FAERS Safety Report 21071471 (Version 6)
Quarter: 2023Q1

REPORT INFORMATION
  Report Type: Report from Study
  Country: KR (occurrence: KR)
  Receive Date: 20220712
  Receipt Date: 20230110
  Transmission Date: 20230418
  Serious: Yes (Death, Hospitalization)
  Sender: FDA-Public Use
  Company Number: KR-NOVARTISPH-NVSC2022KR157230

PATIENT
  Age: 57 Year
  Sex: Female
  Weight: 49.8 kg

DRUGS (8)
  1. ALPELISIB [Suspect]
     Active Substance: ALPELISIB
     Indication: Triple negative breast cancer
     Dosage: UNK
     Route: 048
     Dates: start: 20211029, end: 20220709
  2. PACLITAXEL [Suspect]
     Active Substance: PACLITAXEL
     Indication: Triple negative breast cancer
     Dosage: 158 MG, ONCE
     Route: 042
     Dates: start: 20211029, end: 20220128
  3. PACLITAXEL [Suspect]
     Active Substance: PACLITAXEL
     Dosage: 151 MG, QW
     Route: 042
     Dates: start: 20220207
  4. DEXAMETHASONE [Concomitant]
     Active Substance: DEXAMETHASONE
     Indication: Stomatitis
     Dosage: UNK
     Route: 065
     Dates: start: 20211231
  5. SODIUM BICARBONATE [Concomitant]
     Active Substance: SODIUM BICARBONATE
     Indication: Stomatitis
     Dosage: UNK
     Route: 065
     Dates: start: 20211231
  6. LOPERAMIDE [Concomitant]
     Active Substance: LOPERAMIDE
     Indication: Diarrhoea
     Dosage: UNK
     Route: 065
     Dates: start: 20220401
  7. METHYLPREDNISOLONE [Concomitant]
     Active Substance: METHYLPREDNISOLONE
     Indication: Rash
     Dosage: UNK
     Route: 065
     Dates: start: 20220401
  8. CICLOPIROX [Concomitant]
     Active Substance: CICLOPIROX
     Indication: Nail disorder
     Dosage: UNK
     Route: 065
     Dates: start: 20220620

REACTIONS (1)
  - Haemorrhage intracranial [Fatal]

NARRATIVE: CASE EVENT DATE: 20220709
